FAERS Safety Report 15962758 (Version 3)
Quarter: 2019Q2

REPORT INFORMATION
  Report Type: Spontaneous
  Country: US (occurrence: US)
  Receive Date: 20190214
  Receipt Date: 20190430
  Transmission Date: 20190711
  Serious: Yes (Other)
  Sender: FDA-Public Use
  Company Number: US-ASTRAZENECA-2018SF14107

PATIENT
  Sex: Male

DRUGS (30)
  1. NEXIUM [Suspect]
     Active Substance: ESOMEPRAZOLE MAGNESIUM
     Route: 048
     Dates: start: 20070104, end: 20090623
  2. ATORVASTATIN [Concomitant]
     Active Substance: ATORVASTATIN
  3. RABEPRAZOLE SODIUM. [Concomitant]
     Active Substance: RABEPRAZOLE SODIUM
  4. PROTONIX [Suspect]
     Active Substance: PANTOPRAZOLE SODIUM
     Route: 065
     Dates: start: 20100628, end: 20150804
  5. KETOCONAZOLE. [Concomitant]
     Active Substance: KETOCONAZOLE
  6. NEXIUM [Suspect]
     Active Substance: ESOMEPRAZOLE MAGNESIUM
     Route: 048
     Dates: start: 20081107
  7. PRILOSEC [Suspect]
     Active Substance: OMEPRAZOLE MAGNESIUM
     Route: 048
     Dates: start: 200612, end: 201508
  8. PRILOSEC OTC [Suspect]
     Active Substance: OMEPRAZOLE MAGNESIUM
     Route: 048
  9. CIPROFLOXACIN. [Concomitant]
     Active Substance: CIPROFLOXACIN
  10. METRONIDAZOLE. [Concomitant]
     Active Substance: METRONIDAZOLE
  11. PRILOSEC [Suspect]
     Active Substance: OMEPRAZOLE MAGNESIUM
     Route: 048
  12. CIPROFLOXACIN. [Concomitant]
     Active Substance: CIPROFLOXACIN
  13. DEXILANT [Suspect]
     Active Substance: DEXLANSOPRAZOLE
     Route: 065
     Dates: start: 200612, end: 201508
  14. PREVACID [Suspect]
     Active Substance: LANSOPRAZOLE
     Route: 065
     Dates: start: 20100628, end: 20150804
  15. CHLORTHALIDONE. [Concomitant]
     Active Substance: CHLORTHALIDONE
  16. PLAVIX [Concomitant]
     Active Substance: CLOPIDOGREL BISULFATE
  17. PRILOSEC [Suspect]
     Active Substance: OMEPRAZOLE MAGNESIUM
     Route: 048
     Dates: start: 20090917
  18. DEXILANT [Suspect]
     Active Substance: DEXLANSOPRAZOLE
     Route: 048
     Dates: start: 20100628
  19. PREVACID 24 HR [Suspect]
     Active Substance: LANSOPRAZOLE
     Route: 065
  20. LOTEMAX [Concomitant]
     Active Substance: LOTEPREDNOL ETABONATE
  21. CRESTOR [Concomitant]
     Active Substance: ROSUVASTATIN CALCIUM
  22. RABEPRAZOLE [Concomitant]
     Active Substance: RABEPRAZOLE
  23. NEXIUM 24HR [Suspect]
     Active Substance: ESOMEPRAZOLE MAGNESIUM
     Route: 048
  24. DEXILANT [Suspect]
     Active Substance: DEXLANSOPRAZOLE
     Route: 065
     Dates: start: 20100628, end: 20150804
  25. METOPROLOL. [Concomitant]
     Active Substance: METOPROLOL
  26. NEXIUM [Suspect]
     Active Substance: ESOMEPRAZOLE MAGNESIUM
     Route: 048
     Dates: start: 200612, end: 201508
  27. PREVACID [Suspect]
     Active Substance: LANSOPRAZOLE
     Route: 065
  28. LEVOFLOXACIN. [Concomitant]
     Active Substance: LEVOFLOXACIN
  29. LISINOPRIL. [Concomitant]
     Active Substance: LISINOPRIL
  30. TRAMADOL. [Concomitant]
     Active Substance: TRAMADOL

REACTIONS (2)
  - Chronic kidney disease [Unknown]
  - Renal injury [Unknown]
